FAERS Safety Report 18570376 (Version 1)
Quarter: 2020Q4

REPORT INFORMATION
  Report Type: Report from Study
  Country: US (occurrence: US)
  Receive Date: 20201202
  Receipt Date: 20201202
  Transmission Date: 20210114
  Serious: Yes (Hospitalization)
  Sender: FDA-Public Use
  Company Number: US-GW PHARMA-201810USGW0477

PATIENT

DRUGS (17)
  1. MULTIVITAMINS [VITAMINS NOS] [Concomitant]
     Active Substance: VITAMINS
     Indication: PROPHYLAXIS
     Dosage: 1 DOSAGE FORM, QD
     Route: 048
     Dates: start: 201801
  2. EPIDIOLEX [Suspect]
     Active Substance: CANNABIDIOL
     Dosage: 15 MG/KG, 1002 MILLIGRAM, QD
     Route: 048
     Dates: start: 20180927
  3. TOPAMAX [Concomitant]
     Active Substance: TOPIRAMATE
     Indication: TUBEROUS SCLEROSIS COMPLEX
     Dosage: 200 MILLIGRAM, BID
     Route: 048
     Dates: start: 200412
  4. MELATONIN [Concomitant]
     Active Substance: MELATONIN
     Indication: INSOMNIA
     Dosage: 5 MILLIGRAM, QD
     Route: 048
     Dates: start: 20181017, end: 20181018
  5. EPIDIOLEX [Suspect]
     Active Substance: CANNABIDIOL
     Dosage: 20MG/KG,1336 MILLIGRAM, QD
     Route: 048
     Dates: start: 20180829, end: 20180924
  6. KEPPRA [Concomitant]
     Active Substance: LEVETIRACETAM
     Indication: TUBEROUS SCLEROSIS COMPLEX
     Dosage: 2000 MILLIGRAM, BID
     Route: 048
     Dates: start: 201307
  7. BANZEL [Concomitant]
     Active Substance: RUFINAMIDE
     Indication: TUBEROUS SCLEROSIS COMPLEX
     Dosage: 800 MILLIGRAM, BID W/MEALS
     Route: 048
     Dates: start: 20160516
  8. KLONOPIN [Concomitant]
     Active Substance: CLONAZEPAM
     Dosage: 0.5 MILLIGRAM, PRN
     Route: 060
     Dates: start: 20180929, end: 20180929
  9. SENNA GLYCOSIDES [Concomitant]
     Active Substance: HERBALS\SENNOSIDES
     Indication: CONSTIPATION
     Dosage: 17.2 MILLIGRAM, PRN
     Route: 048
     Dates: start: 20180109
  10. PNEUMOVAX 23 [Concomitant]
     Active Substance: PNEUMOCOCCAL VACCINE, POLYVALENT 23
     Indication: PROPHYLAXIS
     Dosage: 0.5 ML
     Route: 030
  11. ONFI [Concomitant]
     Active Substance: CLOBAZAM
     Indication: TUBEROUS SCLEROSIS COMPLEX
     Dosage: 20 MILLIGRAM, BID
     Route: 048
     Dates: start: 201404
  12. KLONOPIN [Concomitant]
     Active Substance: CLONAZEPAM
     Indication: TUBEROUS SCLEROSIS COMPLEX
     Dosage: 0.5 MILLIGRAM, PRN
     Route: 060
     Dates: start: 20180926, end: 20180926
  13. BISMUTH SUBSALICYLATE. [Concomitant]
     Active Substance: BISMUTH SUBSALICYLATE
     Dosage: 30 MILLILITER, THREE TIMES PER WEEK
     Route: 048
     Dates: start: 20180917
  14. BISMUTH SUBSALICYLATE. [Concomitant]
     Active Substance: BISMUTH SUBSALICYLATE
     Indication: DIARRHOEA
     Dosage: 30 MILLILITER, PRN
     Route: 048
     Dates: start: 20180909, end: 20180909
  15. EPIDIOLEX [Suspect]
     Active Substance: CANNABIDIOL
     Indication: TUBEROUS SCLEROSIS COMPLEX
     Dosage: 50MG/KG, 3340 MILLIGRAM, QD
     Route: 048
     Dates: start: 20180813, end: 20180828
  16. EPIDIOLEX [Suspect]
     Active Substance: CANNABIDIOL
     Dosage: 10MG/KG, 668 MILLIGRAM, QD
     Route: 048
     Dates: start: 20180924, end: 20180927
  17. POLYETHYLENE GLYCOL 3350. [Concomitant]
     Active Substance: POLYETHYLENE GLYCOL 3350
     Indication: CONSTIPATION
     Dosage: 17 GRAM, PRN
     Route: 048
     Dates: start: 20180109

REACTIONS (1)
  - Abdominal pain [Recovered/Resolved]

NARRATIVE: CASE EVENT DATE: 20181009
